FAERS Safety Report 6198609-0 (Version None)
Quarter: 2009Q2

REPORT INFORMATION
  Report Type: 
  Country: None (occurrence: None)
  Receive Date: 20090519
  Receipt Date: 20090519
  Transmission Date: 20091009
  Serious: Yes (Hospitalization)
  Sender: FDA-Public Use
  Company Number: None

PATIENT
  Sex: Female

DRUGS (1)
  1. PRESUN ULTRA SUNSCREEN SPF 30 WESTWOOD-SQUIBB PHARMACEUTICALS [Suspect]
     Indication: PROPHYLAXIS AGAINST SOLAR RADIATION
     Dosage: TOP
     Route: 061
     Dates: start: 20081228, end: 20090507

REACTIONS (3)
  - DACRYOCANALICULITIS [None]
  - EYE DISORDER [None]
  - VISUAL ACUITY REDUCED [None]
